FAERS Safety Report 13558740 (Version 3)
Quarter: 2018Q1

REPORT INFORMATION
  Report Type: Spontaneous
  Country: HU (occurrence: HU)
  Receive Date: 20170518
  Receipt Date: 20180125
  Transmission Date: 20180508
  Serious: Yes (Death)
  Sender: FDA-Public Use
  Company Number: HU-UNITED THERAPEUTICS-UNT-2017-007009

PATIENT
  Age: 12 Year

DRUGS (2)
  1. REMODULIN [Suspect]
     Active Substance: TREPROSTINIL
     Indication: PULMONARY ARTERIAL HYPERTENSION
     Dosage: 0.002 ?G/KG, CONTINUING
     Route: 058
  2. REMODULIN [Suspect]
     Active Substance: TREPROSTINIL
     Dosage: 0.01 ?G/KG, CONTINUING
     Route: 058

REACTIONS (2)
  - Cardiac failure [Unknown]
  - Pulmonary arterial hypertension [Fatal]
